FAERS Safety Report 5106598-2 (Version None)
Quarter: 2006Q3

REPORT INFORMATION
  Report Type: 
  Country: None (occurrence: None)
  Receive Date: 20060912
  Receipt Date: 20060828
  Transmission Date: 20061208
  Serious: Yes (Hospitalization)
  Sender: FDA-Public Use
  Company Number: USA-2006-0025049

PATIENT
  Age: 14 Year
  Sex: Female
  Weight: 38.5 kg

DRUGS (2)
  1. OXYCONTIN [Suspect]
     Indication: PAIN
     Dosage: SEE IMAGE
     Route: 048
     Dates: start: 20060101
  2. OXYCODONE HCL [Suspect]
     Indication: BREAKTHROUGH PAIN
     Dosage: 10 MG, SEE TEXT, ORAL
     Route: 048

REACTIONS (9)
  - ABNORMAL DREAMS [None]
  - CHILLS [None]
  - DRUG INTOLERANCE [None]
  - FEELING ABNORMAL [None]
  - HYPERHIDROSIS [None]
  - INADEQUATE ANALGESIA [None]
  - OFF LABEL USE [None]
  - PYREXIA [None]
  - TREMOR [None]
